FAERS Safety Report 5266340-1 (Version None)
Quarter: 2007Q1

REPORT INFORMATION
  Report Type: 
  Country: None (occurrence: None)
  Receive Date: 20070315
  Receipt Date: 20070301
  Transmission Date: 20070707
  Serious: Yes (Other)
  Sender: FDA-Public Use
  Company Number: CA-ELI_LILLY_AND_COMPANY-CA200702004691

PATIENT
  Sex: Male

DRUGS (3)
  1. STRATTERA [Suspect]
     Indication: ATTENTION DEFICIT/HYPERACTIVITY DISORDER
     Dosage: 60 MG, UNK
  2. STRATTERA [Suspect]
     Dosage: 60 MG, UNK
  3. STRATTERA [Suspect]
     Dosage: 40 MG, UNK

REACTIONS (3)
  - EDUCATIONAL PROBLEM [None]
  - FATIGUE [None]
  - IMPULSIVE BEHAVIOUR [None]
